FAERS Safety Report 9501024 (Version 2)
Quarter: 2013Q4

REPORT INFORMATION
  Report Type: Spontaneous
  Country: ES (occurrence: ES)
  Receive Date: 20130905
  Receipt Date: 20131002
  Transmission Date: 20140711
  Serious: Yes (Death, Hospitalization, Other)
  Sender: FDA-Public Use
  Company Number: ES-009507513-1309ESP001237

PATIENT
  Age: 49 Year
  Sex: Male
  Weight: 65 kg

DRUGS (4)
  1. VICTRELIS [Suspect]
     Indication: CHRONIC HEPATITIS C
     Dosage: 800 MG, Q8H
     Route: 048
     Dates: start: 20121012, end: 201307
  2. RIBAVIRIN [Suspect]
     Indication: HEPATITIS C
     Dosage: UNK
     Dates: start: 2013, end: 201309
  3. PEGASYS [Suspect]
     Indication: HEPATITIS C
     Dosage: UNK
     Dates: start: 2013, end: 201309
  4. ANALGESIC (UNSPECIFIED) [Concomitant]
     Indication: MUSCULOSKELETAL PAIN
     Dosage: UNK
     Dates: start: 201305

REACTIONS (3)
  - Lung cancer metastatic [Fatal]
  - Metastases to liver [Fatal]
  - Sciatica [Not Recovered/Not Resolved]
